FAERS Safety Report 18103050 (Version 7)
Quarter: 2021Q1

REPORT INFORMATION
  Report Type: Report from Study
  Country: NL (occurrence: NL)
  Receive Date: 20200803
  Receipt Date: 20210312
  Transmission Date: 20210419
  Serious: Yes (Other)
  Sender: FDA-Public Use
  Company Number: NL-ALNYLAM PHARMACEUTICALS, INC.-ALN-2020-000679

PATIENT

DRUGS (21)
  1. GIVLAARI [Suspect]
     Active Substance: GIVOSIRAN SODIUM
     Dosage: 209.5 UNK
     Route: 058
     Dates: start: 20200803
  2. GIVLAARI [Suspect]
     Active Substance: GIVOSIRAN SODIUM
     Dosage: 212.25 UNK
     Route: 058
     Dates: start: 20200511, end: 20200511
  3. ACENOCOUMAROL [Concomitant]
     Active Substance: ACENOCOUMAROL
     Indication: CARDIAC VALVE PROSTHESIS USER
     Dosage: 1 MILLIGRAM ACCORDING TO SCHEDULE
     Route: 048
     Dates: end: 20200518
  4. METOPROLOL SUCCINATE. [Concomitant]
     Active Substance: METOPROLOL SUCCINATE
     Dosage: 50 MILLIGRAM, QD, TWICE IF NECESSARY
     Route: 048
     Dates: start: 20200608, end: 20200804
  5. METOPROLOL. [Concomitant]
     Active Substance: METOPROLOL
     Indication: HYPERTENSION
     Dosage: 100 MILLIGRAM, QD
     Route: 048
     Dates: end: 20200608
  6. GIVLAARI [Suspect]
     Active Substance: GIVOSIRAN SODIUM
     Dosage: 209.25 MILLIGRAM, MONTHLY
     Route: 058
     Dates: start: 20201026, end: 20201026
  7. GIVLAARI [Suspect]
     Active Substance: GIVOSIRAN SODIUM
     Dosage: 211.25 MILLIGRAM
     Route: 058
     Dates: start: 20200928, end: 20200928
  8. OMEPRAZOL [Concomitant]
     Active Substance: OMEPRAZOLE
     Indication: PROPHYLAXIS
     Dosage: 20 MILLIGRAM, QD
     Route: 048
  9. GIVLAARI [Suspect]
     Active Substance: GIVOSIRAN SODIUM
     Dosage: 209.8 UNK
     Route: 058
     Dates: start: 20200608, end: 20200608
  10. GIVLAARI [Suspect]
     Active Substance: GIVOSIRAN SODIUM
     Dosage: 209.8 UNK
     Route: 058
     Dates: start: 20210118, end: 20210118
  11. GIVLAARI [Suspect]
     Active Substance: GIVOSIRAN SODIUM
     Dosage: 210.8 UNK
     Route: 058
     Dates: start: 20201221, end: 20201221
  12. GIVLAARI [Suspect]
     Active Substance: GIVOSIRAN SODIUM
     Dosage: 213.3 UNK
     Route: 058
     Dates: start: 20200706, end: 20200706
  13. BECLOMETASONE;FORMOTEROL [Concomitant]
     Active Substance: BECLOMETHASONE\FORMOTEROL
     Indication: CHRONIC OBSTRUCTIVE PULMONARY DISEASE
     Dosage: 200 UNK, BID
  14. GIVLAARI [Suspect]
     Active Substance: GIVOSIRAN SODIUM
     Indication: PORPHYRIA ACUTE
     Dosage: 216.5 UNK
     Route: 058
     Dates: start: 20210215
  15. GIVLAARI [Suspect]
     Active Substance: GIVOSIRAN SODIUM
     Dosage: 212.5 MILLIGRAM, MONTHLY
     Route: 058
     Dates: start: 20201123, end: 20201123
  16. GIVLAARI [Suspect]
     Active Substance: GIVOSIRAN SODIUM
     Dosage: 210.8 MILLIGRAM, MONTHLY
     Route: 058
     Dates: start: 20200316, end: 20200316
  17. IRBESARTAN. [Concomitant]
     Active Substance: IRBESARTAN
     Indication: HYPERTENSION
     Dosage: 300 MILLIGRAM, QD
     Route: 048
  18. NIFEDIPINE. [Concomitant]
     Active Substance: NIFEDIPINE
     Indication: HYPERTENSION
     Dosage: 60 MILLIGRAM, QD
     Route: 048
  19. MARCOUMAR [Concomitant]
     Active Substance: PHENPROCOUMON
     Indication: CARDIAC VALVE PROSTHESIS USER
     Dosage: 3 MILLIGRAM, ACCORDING TO SCHEDULE
     Route: 048
     Dates: start: 20200519
  20. GIVLAARI [Suspect]
     Active Substance: GIVOSIRAN SODIUM
     Dosage: 212.25 UNK
     Route: 058
     Dates: start: 20200410, end: 20200410
  21. METOPROLOL SUCCINATE. [Concomitant]
     Active Substance: METOPROLOL SUCCINATE
     Indication: HYPERTENSION
     Dosage: 50 UNK
     Route: 048
     Dates: start: 20200804

REACTIONS (102)
  - Sleep disorder [Recovered/Resolved]
  - Abdominal pain [Recovered/Resolved]
  - Pain in extremity [Recovered/Resolved]
  - Confusional state [Recovered/Resolved]
  - Psoriasis [Not Recovered/Not Resolved]
  - Abdominal pain [Recovered/Resolved]
  - Fatigue [Recovered/Resolved]
  - Feeling cold [Not Recovered/Not Resolved]
  - Abdominal distension [Recovered/Resolved]
  - Peripheral swelling [Recovered/Resolved]
  - Fatigue [Recovered/Resolved]
  - Abdominal pain [Recovered/Resolved]
  - Lipoma [Not Recovered/Not Resolved]
  - Gait disturbance [Recovered/Resolved]
  - Abdominal pain [Recovered/Resolved]
  - Nausea [Recovered/Resolved]
  - Dry skin [Not Recovered/Not Resolved]
  - Ill-defined disorder [Recovered/Resolved]
  - Fatigue [Recovered/Resolved]
  - Hypersensitivity [Recovered/Resolved]
  - Fatigue [Not Recovered/Not Resolved]
  - Pain in extremity [Not Recovered/Not Resolved]
  - Pelvic pain [Recovered/Resolved]
  - Muscle spasms [Recovered/Resolved]
  - Hypersensitivity [Not Recovered/Not Resolved]
  - Vomiting [Recovered/Resolved]
  - Pain of skin [Not Recovered/Not Resolved]
  - International normalised ratio increased [Recovered/Resolved]
  - Pain in extremity [Recovered/Resolved]
  - Abdominal pain [Recovered/Resolved]
  - Back pain [Recovered/Resolved]
  - Gait disturbance [Recovered/Resolved]
  - Hypersensitivity [Recovered/Resolved]
  - Ill-defined disorder [Recovered/Resolved]
  - Fatigue [Not Recovered/Not Resolved]
  - Feeling cold [Recovered/Resolved]
  - Swelling face [Recovered/Resolved]
  - Heart rate irregular [Recovered/Resolved]
  - Atrial fibrillation [Recovered/Resolved]
  - Heart rate increased [Recovered/Resolved]
  - Oral discomfort [Recovered/Resolved]
  - Pain in extremity [Not Recovered/Not Resolved]
  - Abdominal pain [Not Recovered/Not Resolved]
  - Carpal tunnel syndrome [Not Recovered/Not Resolved]
  - Chest pain [Recovered/Resolved]
  - Abdominal pain [Recovered/Resolved]
  - Abdominal pain [Recovered/Resolved]
  - Sleep disorder [Recovered/Resolved]
  - Ill-defined disorder [Recovered/Resolved]
  - Back pain [Recovered/Resolved]
  - Pallor [Not Recovered/Not Resolved]
  - Furuncle [Recovered/Resolved]
  - Hallucination [Recovered/Resolved]
  - Pain in extremity [Recovered/Resolved]
  - Feeling abnormal [Recovered/Resolved]
  - Sleep disorder [Not Recovered/Not Resolved]
  - Feeling cold [Recovered/Resolved]
  - Dyspnoea [Not Recovered/Not Resolved]
  - Raynaud^s phenomenon [Not Recovered/Not Resolved]
  - Ill-defined disorder [Recovered/Resolved]
  - Ill-defined disorder [Recovered/Resolved]
  - Ill-defined disorder [Recovered/Resolved]
  - Pain in extremity [Recovered/Resolved]
  - Fatigue [Recovered/Resolved]
  - Peripheral swelling [Recovered/Resolved]
  - Fatigue [Recovered/Resolved]
  - Vomiting [Recovered/Resolved]
  - Nausea [Recovered/Resolved]
  - Myalgia [Recovered/Resolved]
  - Sleep disorder [Recovered/Resolved]
  - Sleep disorder [Recovered/Resolved]
  - Sleep disorder [Recovered/Resolved]
  - Sleep disorder [Recovered/Resolved]
  - International normalised ratio decreased [Recovered/Resolved]
  - Dizziness [Recovered/Resolved]
  - Back pain [Recovered/Resolved]
  - Ill-defined disorder [Not Recovered/Not Resolved]
  - Renal impairment [Not Recovered/Not Resolved]
  - Muscle spasms [Recovered/Resolved]
  - Muscle spasms [Not Recovered/Not Resolved]
  - Hyperhomocysteinaemia [Recovered/Resolved]
  - Heart rate irregular [Not Recovered/Not Resolved]
  - Peripheral swelling [Not Recovered/Not Resolved]
  - Delusion [Recovered/Resolved]
  - Hallucination, visual [Recovered/Resolved]
  - Heart rate irregular [Recovered/Resolved]
  - Sleep disorder [Recovered/Resolved]
  - Feeling abnormal [Recovered/Resolved]
  - Dizziness [Recovered/Resolved]
  - Fatigue [Recovered/Resolved]
  - Sleep disorder [Recovered/Resolved]
  - Ill-defined disorder [Recovered/Resolved]
  - Ill-defined disorder [Recovered/Resolved]
  - Wheezing [Recovered/Resolved]
  - Pain of skin [Recovered/Resolved]
  - Abdominal pain [Recovered/Resolved]
  - Feeling cold [Recovered/Resolved]
  - Dizziness [Recovered/Resolved]
  - Nasal oedema [Not Recovered/Not Resolved]
  - Hepatic enzyme increased [Recovered/Resolved]
  - Back pain [Not Recovered/Not Resolved]
  - Gait disturbance [Not Recovered/Not Resolved]

NARRATIVE: CASE EVENT DATE: 20200325
